FAERS Safety Report 7294415-4 (Version None)
Quarter: 2011Q1

REPORT INFORMATION
  Report Type: 
  Country: None (occurrence: None)
  Receive Date: 20110215
  Receipt Date: 20110204
  Transmission Date: 20110831
  Serious: Yes (Hospitalization)
  Sender: FDA-Public Use
  Company Number: US-AMGEN-USASP2011007054

PATIENT
  Age: 69 Year
  Sex: Male

DRUGS (1)
  1. ENBREL [Suspect]
     Indication: RHEUMATOID ARTHRITIS
     Dosage: 25 MG, 2 TIMES/WK
     Dates: start: 20010101

REACTIONS (5)
  - SHOULDER ARTHROPLASTY [None]
  - HIP ARTHROPLASTY [None]
  - INJECTION SITE PAIN [None]
  - HOSPITALISATION [None]
  - INJECTION SITE HAEMORRHAGE [None]
